FAERS Safety Report 12906444 (Version 1)
Quarter: 2016Q4

REPORT INFORMATION
  Report Type: Spontaneous
  Country: US (occurrence: US)
  Receive Date: 20161103
  Receipt Date: 20161103
  Transmission Date: 20170207
  Serious: No
  Sender: FDA-Public Use
  Company Number: US-TEVA-700173ACC

PATIENT
  Age: 28 Year
  Sex: Female
  Weight: 79 kg

DRUGS (2)
  1. PARAGARD T 380A [Suspect]
     Active Substance: COPPER
     Indication: CONTRACEPTION
     Dates: start: 20160802, end: 20160802
  2. CYTOTEC [Concomitant]
     Active Substance: MISOPROSTOL

REACTIONS (2)
  - Complication of device insertion [Unknown]
  - Procedural pain [Recovered/Resolved]

NARRATIVE: CASE EVENT DATE: 20160802
